FAERS Safety Report 5087217-0 (Version None)
Quarter: 2006Q3

REPORT INFORMATION
  Report Type: 
  Country: None (occurrence: None)
  Receive Date: 20060821
  Receipt Date: 20060803
  Transmission Date: 20061208
  Serious: Yes (Hospitalization)
  Sender: FDA-Public Use
  Company Number: L06-JPN-03121-03

PATIENT
  Age: 51 Year
  Sex: Female

DRUGS (1)
  1. CARBAMAZEPINE [Suspect]
     Indication: CONVULSION PROPHYLAXIS

REACTIONS (15)
  - ALANINE AMINOTRANSFERASE INCREASED [None]
  - B-LYMPHOCYTE COUNT DECREASED [None]
  - BLOOD IMMUNOGLOBULIN A DECREASED [None]
  - BLOOD IMMUNOGLOBULIN G DECREASED [None]
  - BLOOD IMMUNOGLOBULIN M DECREASED [None]
  - DISEASE RECURRENCE [None]
  - DRUG HYPERSENSITIVITY [None]
  - HAEMOGLOBIN INCREASED [None]
  - HUMAN HERPESVIRUS 6 INFECTION [None]
  - HYPOGAMMAGLOBULINAEMIA [None]
  - LYMPHADENOPATHY [None]
  - LYMPHOCYTE MORPHOLOGY ABNORMAL [None]
  - LYMPHOCYTOSIS [None]
  - RASH [None]
  - WHITE BLOOD CELL COUNT INCREASED [None]
